FAERS Safety Report 19230105 (Version 1)
Quarter: 2021Q2

REPORT INFORMATION
  Report Type: Spontaneous
  Country: US (occurrence: US)
  Receive Date: 20210507
  Receipt Date: 20210507
  Transmission Date: 20210717
  Serious: No
  Sender: FDA-Public Use
  Company Number: US-SA-2021SA146312

PATIENT
  Sex: Male

DRUGS (2)
  1. DUPIXENT [Suspect]
     Active Substance: DUPILUMAB
     Indication: ASTHMA
     Dosage: 600 MG, 1X
     Route: 058
  2. DUPIXENT [Suspect]
     Active Substance: DUPILUMAB
     Indication: NASAL POLYPS
     Dosage: 300 MG
     Route: 058

REACTIONS (14)
  - Sneezing [Recovered/Resolved]
  - Facial pain [Unknown]
  - Hyposmia [Unknown]
  - Upper-airway cough syndrome [Recovered/Resolved]
  - Hypogeusia [Unknown]
  - Sinusitis [Recovered/Resolved]
  - Rhinorrhoea [Recovered/Resolved]
  - Vitreous floaters [Recovered/Resolved]
  - Decreased activity [Unknown]
  - Cough [Recovered/Resolved]
  - Wheezing [Unknown]
  - Condition aggravated [Recovered/Resolved]
  - Dyspnoea [Unknown]
  - Chest discomfort [Unknown]

NARRATIVE: CASE EVENT DATE: 2021
